FAERS Safety Report 4316112-7 (Version None)
Quarter: 2004Q1

REPORT INFORMATION
  Report Type: 
  Country: None (occurrence: None)
  Receive Date: 20040310
  Receipt Date: 20020408
  Transmission Date: 20041129
  Serious: Yes (Hospitalization)
  Sender: FDA-Public Use
  Company Number: 30018693-NA01-1

PATIENT
  Age: 69 Year
  Sex: Male

DRUGS (8)
  1. EXTRANEAL [Suspect]
     Indication: PERITONEAL DIALYSIS
     Dosage: 7.5% ICODEXTRIN 2L; QD IP
     Route: 033
     Dates: start: 20010615, end: 20020101
  2. ATORVASTATIN CALCIUM [Concomitant]
  3. TARDOFER (FERROUS SULFATE) [Concomitant]
  4. OMEPRAZOLE [Concomitant]
  5. CALCIUM (CALCIUM) [Concomitant]
  6. ADANCOR (NICORANDIL) [Concomitant]
  7. INOVEN [Concomitant]
  8. DIANEAL PD1 (DIANEAL PD1 GLUCOSE AND ELECTROLYTES) [Concomitant]

REACTIONS (4)
  - ATRIAL FIBRILLATION [None]
  - EOSINOPHIL COUNT INCREASED [None]
  - PERITONEAL FLUID ANALYSIS ABNORMAL [None]
  - PERITONITIS [None]
